FAERS Safety Report 9524844 (Version 1)
Quarter: 2013Q1

REPORT INFORMATION
  Report Type: Spontaneous
  Country: US (occurrence: None)
  Receive Date: 20130305
  Receipt Date: 20130305
  Transmission Date: 20140127
  Serious: Yes (Other)
  Sender: FDA-Public Use
  Company Number: 163-21880-12033403

PATIENT
  Age: 55 Year
  Sex: Male

DRUGS (1)
  1. REVLIMID [Suspect]
     Indication: PLASMA CELL MYELOMA
     Dosage: 10 MG CAPSULE, DAILY X 21/28 DAYS, PO
     Dates: start: 20111219, end: 20120108

REACTIONS (1)
  - Pancytopenia [None]
